FAERS Safety Report 11100256 (Version 1)
Quarter: 2015Q2

REPORT INFORMATION
  Report Type: Spontaneous
  Country: US (occurrence: None)
  Receive Date: 20150507
  Receipt Date: 20150507
  Transmission Date: 20150821
  Serious: Yes (Life-Threatening)
  Sender: FDA-Public Use
  Company Number: None

PATIENT
  Age: 65 Year
  Sex: Male
  Weight: 72.58 kg

DRUGS (8)
  1. ATORVASTINE [Concomitant]
  2. PRESERVISION ADERDS 2 VITAMINS [Concomitant]
  3. LORATADINE. [Concomitant]
     Active Substance: LORATADINE
  4. BLOOD GLUCOSE MONITOR [Concomitant]
  5. GLUCAGON. [Suspect]
     Active Substance: GLUCAGON
     Indication: BLOOD GLUCOSE DECREASED
     Dosage: ONE PER LOW BLOOD SUGAR EVENT  AS NEEDED  INJECTED UNDER THE SKIN
     Route: 058
     Dates: start: 20150505
  6. PHENYLEPHRINE [Concomitant]
     Active Substance: PHENYLEPHRINE\PHENYLEPHRINE HYDROCHLORIDE
  7. INSULIN [Concomitant]
     Active Substance: INSULIN NOS
  8. D3 VITAMINS [Concomitant]

REACTIONS (1)
  - Device failure [None]

NARRATIVE: CASE EVENT DATE: 20150505
